FAERS Safety Report 17712821 (Version 1)
Quarter: 2020Q2

REPORT INFORMATION
  Report Type: Spontaneous
  Country: DE (occurrence: DE)
  Receive Date: 20200427
  Receipt Date: 20200427
  Transmission Date: 20200714
  Serious: Yes (Hospitalization, Other)
  Sender: FDA-Public Use
  Company Number: NVSC2020DE111422

PATIENT
  Age: 51 Year
  Sex: Female
  Weight: 75 kg

DRUGS (3)
  1. BUDESONIDE. [Suspect]
     Active Substance: BUDESONIDE
     Indication: PRODUCT USED FOR UNKNOWN INDICATION
     Dosage: 400 UG, Q12H
     Route: 055
     Dates: start: 201509
  2. BUDESONIDE. [Suspect]
     Active Substance: BUDESONIDE
     Dosage: 400 UG, Q12H
     Route: 055
     Dates: end: 201504
  3. BUDESONIDE. [Suspect]
     Active Substance: BUDESONIDE
     Dosage: 200 UG, QD
     Route: 055

REACTIONS (6)
  - Cyanosis [Unknown]
  - Nasal congestion [Unknown]
  - Headache [Unknown]
  - Cold sweat [Unknown]
  - Asthma [Unknown]
  - Upper respiratory tract infection [Unknown]

NARRATIVE: CASE EVENT DATE: 201512
